FAERS Safety Report 5777423-1 (Version None)
Quarter: 2008Q2

REPORT INFORMATION
  Report Type: 
  Country: None (occurrence: None)
  Receive Date: 20080601
  Receipt Date: 20080211
  Transmission Date: 20081010
  Serious: No
  Sender: FDA-Public Use
  Company Number: 2005PV000118

PATIENT
  Age: 59 Year
  Sex: Female
  Weight: 84.8 kg

DRUGS (20)
  1. EXENATIDE(EXENATIDE) PEN,DISPOSABLE [Suspect]
     Dosage: 5 UG, 2/D, SUBCUTANEOUS ; 5 UG, 2/D, SUBCUTANEOUS ; 10 UG, 2/D, SUBCUTANEOUS
     Route: 058
     Dates: start: 20050101
  2. EXENATIDE(EXENATIDE) PEN,DISPOSABLE [Suspect]
     Dosage: 5 UG, 2/D, SUBCUTANEOUS ; 5 UG, 2/D, SUBCUTANEOUS ; 10 UG, 2/D, SUBCUTANEOUS
     Route: 058
     Dates: start: 20050607
  3. EXENATIDE(EXENATIDE) PEN,DISPOSABLE [Suspect]
  4. AMARYL [Concomitant]
  5. GLUCOPHAGE [Concomitant]
  6. ACTOS [Concomitant]
  7. LEVEMIR (INSULIN DETEMIR) [Concomitant]
  8. CINNAMON [Concomitant]
  9. ASPIRIN [Concomitant]
  10. SYNTHROID [Concomitant]
  11. AVAPRO [Concomitant]
  12. MAGOX [Concomitant]
  13. VYTORIN [Concomitant]
  14. MULTI-VITAMINS [Concomitant]
  15. FISH OIL [Concomitant]
  16. FOLIC ACID [Concomitant]
  17. COENZYME Q10 [Concomitant]
  18. GLUCOSAMINE [Concomitant]
  19. CHROMIUM [Concomitant]
  20. NEXIUM [Concomitant]

REACTIONS (5)
  - BLOOD GLUCOSE INCREASED [None]
  - INJECTION SITE DISCOLOURATION [None]
  - NAUSEA [None]
  - RETCHING [None]
  - WEIGHT DECREASED [None]
